FAERS Safety Report 13067349 (Version 3)
Quarter: 2017Q3

REPORT INFORMATION
  Report Type: Report from Study
  Country: JP (occurrence: JP)
  Receive Date: 20161228
  Receipt Date: 20170920
  Transmission Date: 20171127
  Serious: Yes (Other)
  Sender: FDA-Public Use
  Company Number: JP-ALXN-A201610093AA

PATIENT

DRUGS (7)
  1. SOL-MELCORT [Concomitant]
     Active Substance: METHYLPREDNISOLONE SODIUM SUCCINATE
     Dosage: 38 MG PER DAY ON AVERAGE, QD
     Route: 041
     Dates: start: 20160316, end: 20160523
  2. PREDNISOLONE. [Concomitant]
     Active Substance: PREDNISOLONE
     Indication: HAEMOLYTIC URAEMIC SYNDROME
     Dosage: 5 MG, QD
     Route: 048
     Dates: start: 20160412, end: 20160507
  3. SOL-MELCORT [Concomitant]
     Active Substance: METHYLPREDNISOLONE SODIUM SUCCINATE
     Indication: HAEMOLYTIC URAEMIC SYNDROME
     Dosage: 80 MG, QD
     Route: 041
     Dates: start: 20160309, end: 20160315
  4. SOLIRIS [Suspect]
     Active Substance: ECULIZUMAB
     Indication: HAEMOLYTIC URAEMIC SYNDROME
     Dosage: 900 MG, UNK
     Route: 042
     Dates: start: 20160318
  5. PREDONINE [Concomitant]
     Active Substance: PREDNISOLONE
     Indication: HAEMOLYTIC URAEMIC SYNDROME
     Dosage: 121 MG PER DAY ON AVERAGE, QD
     Route: 041
     Dates: start: 20160322, end: 20160817
  6. ZOSYN [Concomitant]
     Active Substance: PIPERACILLIN SODIUM\TAZOBACTAM SODIUM
     Indication: PRODUCT USED FOR UNKNOWN INDICATION
     Dosage: 2.25 G, BID
     Route: 041
     Dates: start: 20160317, end: 20160401
  7. ZOSYN [Concomitant]
     Active Substance: PIPERACILLIN SODIUM\TAZOBACTAM SODIUM
     Dosage: 2.25 G, BID
     Route: 041
     Dates: start: 20160425, end: 20160426

REACTIONS (5)
  - Infection [Unknown]
  - Enterococcal infection [Recovered/Resolved]
  - Hypertension [Not Recovered/Not Resolved]
  - Enterococcal infection [Unknown]
  - Enterococcal infection [Unknown]

NARRATIVE: CASE EVENT DATE: 20160427
